FAERS Safety Report 7958935 (Version 3)
Quarter: 2013Q2

REPORT INFORMATION
  Report Type: Spontaneous
  Country: US (occurrence: US)
  Receive Date: 20110524
  Receipt Date: 20130524
  Transmission Date: 20140414
  Serious: Yes (Life-Threatening, Congenital Anomaly, Other)
  Sender: FDA-Public Use
  Company Number: US-PFIZER INC-2011105747

PATIENT
  Sex: Male
  Weight: 2.84 kg

DRUGS (3)
  1. EFFEXOR XR [Suspect]
     Dosage: 75 MG, 1X/DAY
     Route: 064
     Dates: start: 2009
  2. EFFEXOR [Suspect]
     Dosage: UNK
     Route: 064
  3. VENLAFAXINE HCL [Suspect]
     Dosage: UNK
     Route: 064

REACTIONS (28)
  - Foetal exposure during pregnancy [Unknown]
  - Spina bifida [Unknown]
  - Congenital central nervous system anomaly [Unknown]
  - Meningomyelocele [Recovered/Resolved]
  - Hydrocephalus [Unknown]
  - Hydrocele [Unknown]
  - Paralysis [Unknown]
  - Hydronephrosis [Unknown]
  - Arnold-Chiari malformation [Unknown]
  - Developmental hip dysplasia [Unknown]
  - Mitral valve incompetence [Unknown]
  - Tricuspid valve incompetence [Unknown]
  - Pulmonary valve incompetence [Unknown]
  - Otitis media [Recovered/Resolved]
  - Congenital anomaly [Unknown]
  - Nervous system disorder [Unknown]
  - Anaemia [Unknown]
  - Umbilical hernia [Recovered/Resolved]
  - Cerebral ventricle dilatation [Unknown]
  - Congenital aqueductal stenosis [Unknown]
  - Upper respiratory tract infection [Unknown]
  - Dermatitis atopic [Not Recovered/Not Resolved]
  - Scoliosis [Recovered/Resolved]
  - Lordosis [Unknown]
  - Knee deformity [Unknown]
  - Vesicoureteric reflux [Unknown]
  - Urinary tract infection [Unknown]
  - Cellulitis [Unknown]
